FAERS Safety Report 8147610-6 (Version None)
Quarter: 2012Q1

REPORT INFORMATION
  Report Type: 
  Country: None (occurrence: None)
  Receive Date: 20120218
  Receipt Date: 20110309
  Transmission Date: 20120608
  Serious: No
  Sender: FDA-Public Use
  Company Number: US-ALLERGAN-1016239US

PATIENT
  Age: 56 Year
  Sex: Female
  Weight: 56.689 kg

DRUGS (4)
  1. BACLOFEN [Concomitant]
     Indication: DYSTONIA
     Dosage: 25 MG, BID
     Route: 048
     Dates: start: 20100601
  2. BOTULINUM TOXIN TYPE A [Suspect]
     Dosage: UNK UNITS
     Route: 030
     Dates: start: 20100820, end: 20100820
  3. BOTULINUM TOXIN TYPE A [Suspect]
     Indication: DYSTONIA
     Dosage: UNK UNITS
     Route: 030
     Dates: start: 20110224, end: 20110224
  4. BOTULINUM TOXIN TYPE A [Suspect]
     Indication: TORTICOLLIS
     Dosage: 300 UNITS, SINGLE
     Route: 030
     Dates: start: 20101124, end: 20101124

REACTIONS (8)
  - ASTHENIA [None]
  - PYREXIA [None]
  - DYSPHAGIA [None]
  - INCREASED VISCOSITY OF BRONCHIAL SECRETION [None]
  - CHILLS [None]
  - PAIN [None]
  - INFLUENZA LIKE ILLNESS [None]
  - DYSPHONIA [None]
